FAERS Safety Report 8952304 (Version 1)
Quarter: 2012Q4

REPORT INFORMATION
  Report Type: 
  Country: CN (occurrence: CN)
  Receive Date: 20121205
  Receipt Date: 20121205
  Transmission Date: 20130627
  Serious: Yes (Hospitalization, Other)
  Sender: FDA-Public Use
  Company Number: PHHY2012CN108280

PATIENT
  Age: 63 Year
  Sex: Male
  Weight: 61 kg

DRUGS (1)
  1. TEGRETOL [Suspect]
     Indication: TOOTHACHE
     Dosage: 400 mg, TID
     Dates: start: 20100920, end: 20101009

REACTIONS (7)
  - Trigeminal neuralgia [Recovering/Resolving]
  - Toothache [Recovering/Resolving]
  - Dermatitis exfoliative [Unknown]
  - Generalised erythema [Unknown]
  - Pruritus [Unknown]
  - Flushing [Unknown]
  - Skin exfoliation [Unknown]
